FAERS Safety Report 18851809 (Version 2)
Quarter: 2021Q1

REPORT INFORMATION
  Report Type: Spontaneous
  Country: US (occurrence: US)
  Receive Date: 20210205
  Receipt Date: 20210211
  Transmission Date: 20210420
  Serious: Yes (Death)
  Sender: FDA-Public Use
  Company Number: US-TEVA-2021-US-1874909

PATIENT
  Age: 57 Year
  Sex: Male
  Weight: 183.2 kg

DRUGS (35)
  1. VALSARTAN/HYDROCHLORTHIAZIDE QUALITEST [Suspect]
     Active Substance: HYDROCHLOROTHIAZIDE\VALSARTAN
     Indication: HYPERTENSION
     Dosage: DOSAGE : 80MG?12.5MG
     Route: 065
     Dates: start: 20140913, end: 20160811
  2. LYRICA [Concomitant]
     Active Substance: PREGABALIN
     Dosage: 75 MILLIGRAM DAILY;
     Route: 048
  3. EZETIMIBE. [Concomitant]
     Active Substance: EZETIMIBE
     Dosage: 10 MILLIGRAM DAILY; EVERY EVENING
     Route: 048
     Dates: end: 20181210
  4. FLEXERIL [Concomitant]
     Active Substance: CYCLOBENZAPRINE HYDROCHLORIDE
     Dosage: 20 MILLIGRAM DAILY; TAKE 10MG BY MOUTH TWICE A DAY
     Route: 048
  5. HYDRODIURIL [Concomitant]
     Active Substance: HYDROCHLOROTHIAZIDE
     Dosage: 25 MILLIGRAM DAILY;
     Route: 048
     Dates: end: 20181216
  6. SODIUM CHLORIDE. [Concomitant]
     Active Substance: SODIUM CHLORIDE
     Dosage: 0.9% BOLUS
     Dates: end: 20181101
  7. VALSARTAN/HYDROCHLORTHIAZIDE ALEMBIC [Suspect]
     Active Substance: HYDROCHLOROTHIAZIDE\VALSARTAN
     Indication: HYPERTENSION
     Dosage: DOSAGE : 80MG?12.5MG
     Route: 065
     Dates: start: 20130215, end: 20140615
  8. NORCO [Concomitant]
     Active Substance: ACETAMINOPHEN\HYDROCODONE BITARTRATE
     Dosage: 5?325, TAKE 1 TABLET EVERY 6 HOURS AS NEEDED
     Route: 048
     Dates: start: 20181113, end: 20181210
  9. COLACE [Concomitant]
     Active Substance: DOCUSATE SODIUM
     Dosage: 100 MG
     Route: 048
     Dates: start: 20181113
  10. SUBLIMAZE [Concomitant]
     Active Substance: FENTANYL CITRATE
     Dates: end: 20181101
  11. LEVOPHED [Concomitant]
     Active Substance: NOREPINEPHRINE BITARTRATE
     Dosage: 2?30 MCG/MIN CONTINUOUS
     Route: 042
  12. VANCOMYCIN [Concomitant]
     Active Substance: VANCOMYCIN
     Dosage: 2000 MG ONCE
     Route: 042
  13. TRESIBA [Concomitant]
     Active Substance: INSULIN DEGLUDEC
     Dosage: INJECT 60 UNITS UNDER THE SKIN NIGHTLY
     Dates: end: 20181210
  14. ZOFRAN [Concomitant]
     Active Substance: ONDANSETRON HYDROCHLORIDE
     Dates: end: 20181101
  15. PREGABALIN. [Concomitant]
     Active Substance: PREGABALIN
     Dosage: 75 MG TWICE A DAY
     Route: 048
  16. VALSARTAN/HYDROCHLORTHIAZIDE AUROBINDO [Suspect]
     Active Substance: HYDROCHLOROTHIAZIDE\VALSARTAN
     Dosage: DOSAGE : 80MG/12.5MG
     Dates: start: 20160809, end: 20181201
  17. NAPROSYN [Concomitant]
     Active Substance: NAPROXEN
     Indication: PAIN
     Dosage: 1000 MILLIGRAM DAILY; 500 MG TWICE A DAY
     Route: 048
  18. ASPIRIN. [Concomitant]
     Active Substance: ASPIRIN
     Dosage: 81 MILLIGRAM DAILY;
     Route: 048
     Dates: end: 20181216
  19. ZOSYN [Concomitant]
     Active Substance: PIPERACILLIN SODIUM\TAZOBACTAM SODIUM
     Dosage: 3.375G
     Route: 042
  20. VALSARTAN/HYDROCHLORTHIAZIDE AUROBINDO [Suspect]
     Active Substance: HYDROCHLOROTHIAZIDE\VALSARTAN
     Dosage: DOSAGE : 80MG/12.5MG
     Route: 065
     Dates: start: 20150904, end: 20171201
  21. VALSARTAN/HYDROCHLORTHIAZIDE ALEMBIC [Suspect]
     Active Substance: HYDROCHLOROTHIAZIDE\VALSARTAN
     Dosage: DOSAGE : 80MG?12.5MG
     Route: 065
     Dates: start: 20180112, end: 20180326
  22. DIOVAN HCT [Suspect]
     Active Substance: HYDROCHLOROTHIAZIDE\VALSARTAN
     Dosage: 80?12.5MG
     Route: 048
     Dates: end: 20181216
  23. TRADJENTA [Concomitant]
     Active Substance: LINAGLIPTIN
     Dosage: 5 MILLIGRAM DAILY;
     Route: 048
     Dates: start: 20181015, end: 20181216
  24. NORCO [Concomitant]
     Active Substance: ACETAMINOPHEN\HYDROCODONE BITARTRATE
     Indication: PAIN
     Dosage: 10?325, TAKE 1 TABLET DAILY
     Route: 048
     Dates: start: 20181024, end: 20181216
  25. MOVANTIK [Concomitant]
     Active Substance: NALOXEGOL OXALATE
     Dosage: 12.5 MILLIGRAM DAILY;
     Route: 048
  26. TAMSULOSIN [Concomitant]
     Active Substance: TAMSULOSIN
     Dosage: 0.4 MG NIGHTLY
     Route: 048
  27. LASIX [Concomitant]
     Active Substance: FUROSEMIDE
     Dosage: 40MG
     Route: 042
  28. VALSARTAN/HYDROCHLORTHIAZIDE AUROBINDO [Suspect]
     Active Substance: HYDROCHLOROTHIAZIDE\VALSARTAN
     Indication: HYPERTENSION
     Dosage: DOSAGE : 80MG/12.5MG
     Route: 065
     Dates: start: 20140715, end: 20140910
  29. PRILOSEC [Concomitant]
     Active Substance: OMEPRAZOLE MAGNESIUM
     Dosage: 40 MILLIGRAM DAILY; TAKE 1 CAPSULE ORALLY TWICE A DAY
     Route: 048
     Dates: start: 20181004
  30. ISOVUE 370 [Concomitant]
     Active Substance: IOPAMIDOL
     Dates: end: 20181101
  31. COMPAZINE [Concomitant]
     Active Substance: PROCHLORPERAZINE MALEATE
     Dosage: 10MG EVERY 6 HOURS AS NEEDED
     Route: 048
     Dates: start: 20181206
  32. VALSARTAN/HYDROCHLORTHIAZIDE AUROBINDO [Suspect]
     Active Substance: HYDROCHLOROTHIAZIDE\VALSARTAN
     Dosage: DOSAGE : 80MG/12.5MG
     Route: 065
     Dates: start: 20150614, end: 20150810
  33. VALSARTAN/HYDROCHLORTHIAZIDE MACLEODS [Suspect]
     Active Substance: HYDROCHLOROTHIAZIDE\VALSARTAN
     Dosage: DOSAGE : 80MG?12.5MG
     Route: 065
     Dates: start: 20180618, end: 20181109
  34. TRULICITY [Concomitant]
     Active Substance: DULAGLUTIDE
     Dosage: 1.5MG/0.5ML, 1 INJECTION ONCE WEEKLY
     Route: 058
     Dates: start: 20181015, end: 20181216
  35. VOLTAREN [Concomitant]
     Active Substance: DICLOFENAC SODIUM
     Indication: ARTHRALGIA
     Dosage: APPLY 2G TOPICALLY 4 TIMES A DAY
     Route: 061

REACTIONS (2)
  - Hepatic cancer stage IV [Fatal]
  - Pancreatic carcinoma stage IV [Fatal]
